FAERS Safety Report 9057673 (Version 1)
Quarter: 2013Q1

REPORT INFORMATION
  Report Type: Spontaneous
  Country: US (occurrence: US)
  Receive Date: 20130204
  Receipt Date: 20130204
  Transmission Date: 20140127
  Serious: No
  Sender: FDA-Public Use
  Company Number: US-PFIZER INC-2013044575

PATIENT
  Age: 91 Year
  Sex: Male
  Weight: 90.7 kg

DRUGS (3)
  1. LIPITOR [Suspect]
     Indication: HYPERGLYCAEMIA
     Dosage: 20 MG, DAILY
  2. LIPITOR [Suspect]
     Indication: CORONARY ARTERY OCCLUSION
  3. NIACIN [Concomitant]
     Indication: VITAMIN SUPPLEMENTATION
     Dosage: 100 MG, TWO TIMES A DAY

REACTIONS (1)
  - Arthralgia [Not Recovered/Not Resolved]
